FAERS Safety Report 5319280-3 (Version None)
Quarter: 2007Q2

REPORT INFORMATION
  Report Type: 
  Country: None (occurrence: None)
  Receive Date: 20070508
  Receipt Date: 20070430
  Transmission Date: 20071010
  Serious: Yes (Other)
  Sender: FDA-Public Use
  Company Number: GB-PFIZER INC-2007017862

PATIENT
  Sex: Male
  Weight: 57 kg

DRUGS (3)
  1. EXUBERA [Suspect]
     Indication: DIABETES MELLITUS NON-INSULIN-DEPENDENT
     Route: 055
     Dates: start: 20070112, end: 20070313
  2. INSUMAN COMB 25 [Concomitant]
  3. HUMALOG MIX 25 [Concomitant]
     Indication: DIABETES MELLITUS
     Route: 058

REACTIONS (7)
  - CHEST PAIN [None]
  - COUGH [None]
  - DYSGEUSIA [None]
  - DYSPNOEA [None]
  - HAEMOPTYSIS [None]
  - HAEMORRHAGE [None]
  - PRODUCTIVE COUGH [None]
